FAERS Safety Report 16112353 (Version 1)
Quarter: 2019Q2

REPORT INFORMATION
  Report Type: Spontaneous
  Country: US (occurrence: US)
  Receive Date: 20190324
  Receipt Date: 20190324
  Transmission Date: 20190711
  Serious: Yes (Disabling)
  Sender: FDA-Public Use
  Company Number: None

PATIENT
  Age: 52 Year
  Sex: Female
  Weight: 75.6 kg

DRUGS (5)
  1. CRANBERRY CAPSULE [Concomitant]
     Active Substance: DIETARY SUPPLEMENT
  2. CALCIUM [Concomitant]
     Active Substance: CALCIUM
  3. GABAPENTIN CAPSULES [Suspect]
     Active Substance: GABAPENTIN
     Indication: NERVE COMPRESSION
     Dosage: ?          QUANTITY:1 CAPSULE(S);?
     Route: 048
     Dates: start: 20190317, end: 20190323
  4. VITAMIN D NOS [Concomitant]
     Active Substance: VITAMIN D NOS
  5. MULTI VITAMIN [Concomitant]
     Active Substance: VITAMINS

REACTIONS (4)
  - Pruritus [None]
  - Urticaria [None]
  - Swollen tongue [None]
  - Swelling face [None]

NARRATIVE: CASE EVENT DATE: 20190324
